FAERS Safety Report 9742091 (Version 5)
Quarter: 2014Q1

REPORT INFORMATION
  Report Type: Other
  Country: US (occurrence: US)
  Receive Date: 20131210
  Receipt Date: 20140312
  Transmission Date: 20141002
  Serious: Yes (Other)
  Sender: FDA-Public Use
  Company Number: US-RANBAXY-2013US-76160

PATIENT
  Age: 22 Year
  Sex: Female

DRUGS (3)
  1. ABSORICA [Suspect]
     Indication: PRODUCT USED FOR UNKNOWN INDICATION
     Dosage: 30 MG, BID
     Route: 065
     Dates: start: 20131022, end: 20131128
  2. YAZ [Concomitant]
     Indication: ORAL CONTRACEPTION
     Route: 065
  3. CARNETINE [Concomitant]
     Indication: VITAMIN SUPPLEMENTATION
     Route: 065

REACTIONS (2)
  - Exposure during pregnancy [Unknown]
  - Abortion spontaneous [Unknown]
